FAERS Safety Report 8487412-4 (Version None)
Quarter: 2012Q2

REPORT INFORMATION
  Report Type: 
  Country: None (occurrence: None)
  Receive Date: 20120628
  Receipt Date: 20120628
  Transmission Date: 20120825
  Serious: Yes (Hospitalization)
  Sender: FDA-Public Use
  Company Number: None

PATIENT
  Sex: Female

DRUGS (4)
  1. VITAMIN D [Concomitant]
  2. CENTROID [Concomitant]
  3. ASPIRIN [Concomitant]
  4. LANTUS [Suspect]
     Indication: DIABETES MELLITUS
     Dosage: 100 UNITS- ML ONCE A NIGHT SUBDERMAL 10-20 YEARS
     Route: 059

REACTIONS (2)
  - PRODUCT SUBSTITUTION ISSUE [None]
  - CONVULSION [None]
